FAERS Safety Report 7364734-1 (Version None)
Quarter: 2011Q1

REPORT INFORMATION
  Report Type: 
  Country: None (occurrence: None)
  Receive Date: 20110321
  Receipt Date: 20110308
  Transmission Date: 20110831
  Serious: Yes (Hospitalization)
  Sender: FDA-Public Use
  Company Number: PHHY2011JP19333

PATIENT
  Age: 66 Year
  Sex: Female

DRUGS (1)
  1. ISONIAZID [Suspect]
     Indication: TUBERCULOSIS
     Dosage: 300 MG, QD

REACTIONS (7)
  - HAEMATURIA [None]
  - OEDEMA [None]
  - BLOOD CHOLESTEROL INCREASED [None]
  - NEPHROTIC SYNDROME [None]
  - SECONDARY AMYLOIDOSIS [None]
  - FATIGUE [None]
  - PROTEINURIA [None]
